FAERS Safety Report 5840501-2 (Version None)
Quarter: 2008Q3

REPORT INFORMATION
  Report Type: 
  Country: None (occurrence: None)
  Receive Date: 20080807
  Receipt Date: 20080807
  Transmission Date: 20090109
  Serious: Yes (Other)
  Sender: FDA-Public Use
  Company Number: None

PATIENT
  Age: 39 Year
  Sex: Female
  Weight: 47.6277 kg

DRUGS (1)
  1. PRENATAL PLUS PRENATAL PLS IRON TAB AMID ACTIVIS [Suspect]
     Indication: BREAST FEEDING
     Dosage: 1 TAB QD PO
     Route: 048
     Dates: start: 20071219, end: 20080415

REACTIONS (5)
  - ANXIETY [None]
  - DYSPNOEA [None]
  - MICTURITION URGENCY [None]
  - PHARMACEUTICAL PRODUCT COMPLAINT [None]
  - POLLAKIURIA [None]
